FAERS Safety Report 9049126 (Version 1)
Quarter: 2013Q1

REPORT INFORMATION
  Report Type: Spontaneous
  Country: US (occurrence: None)
  Receive Date: 20130130
  Receipt Date: 20130130
  Transmission Date: 20140127
  Serious: Yes (Other)
  Sender: FDA-Public Use
  Company Number: None

PATIENT
  Age: 54 Year
  Sex: Female
  Weight: 95.26 kg

DRUGS (1)
  1. METRONIDAZOLE/FLAY 500MG [Suspect]

REACTIONS (2)
  - Oropharyngeal pain [None]
  - Dysphagia [None]
